FAERS Safety Report 6862697-6 (Version None)
Quarter: 2010Q3

REPORT INFORMATION
  Report Type: 
  Country: None (occurrence: None)
  Receive Date: 20100721
  Receipt Date: 20100706
  Transmission Date: 20110219
  Serious: Yes (Hospitalization)
  Sender: FDA-Public Use
  Company Number: GB-SHIRE-SPV1-2010-01269

PATIENT

DRUGS (2)
  1. MIDON [Suspect]
     Indication: HYPOTENSION
     Dates: start: 20100609, end: 20100609
  2. ASPIRIN [Concomitant]
     Dosage: T TABLET, 3X/DAY:TID

REACTIONS (4)
  - BLOOD PRESSURE SYSTOLIC INCREASED [None]
  - CARDIOVASCULAR DISORDER [None]
  - POISONING [None]
  - POLYURIA [None]
